FAERS Safety Report 12722107 (Version 2)
Quarter: 2016Q4

REPORT INFORMATION
  Report Type: Spontaneous
  Country: US (occurrence: US)
  Receive Date: 20160907
  Receipt Date: 20161207
  Transmission Date: 20170207
  Serious: Yes (Other)
  Sender: FDA-Public Use
  Company Number: US-BAYER-2016-171699

PATIENT
  Age: 59 Year
  Sex: Female

DRUGS (24)
  1. CIPROFLOXACIN HCL [Suspect]
     Active Substance: CIPROFLOXACIN HYDROCHLORIDE
     Dosage: 500 MG, UNK
     Route: 048
     Dates: start: 20140131
  2. DEXAMETHASONE. [Concomitant]
     Active Substance: DEXAMETHASONE
     Dosage: UNK
  3. CIPROFLOXACIN HCL [Suspect]
     Active Substance: CIPROFLOXACIN HYDROCHLORIDE
     Dosage: 500 MG, UNK
     Route: 048
     Dates: start: 20120227
  4. AMOXIL [Concomitant]
     Active Substance: AMOXICILLIN
     Dosage: UNK
  5. MEDROL [Concomitant]
     Active Substance: METHYLPREDNISOLONE
     Dosage: UNK
  6. TRIMOX [AMOXICILLIN TRIHYDRATE] [Concomitant]
     Dosage: UNK
  7. OTHER ANTIINFLAMMATORY AGENTS IN COMB. [Concomitant]
  8. METHYLPREDNISOLONE. [Concomitant]
     Active Substance: METHYLPREDNISOLONE
     Dosage: UNK
  9. LEVAQUIN [Suspect]
     Active Substance: LEVOFLOXACIN
     Dosage: 500 MG
     Dates: start: 20100218
  10. LEVAQUIN [Suspect]
     Active Substance: LEVOFLOXACIN
     Dosage: 600 MG
     Route: 048
     Dates: start: 20100218
  11. CIPROFLOXACIN HCL [Suspect]
     Active Substance: CIPROFLOXACIN HYDROCHLORIDE
     Dosage: 500 MG, UNK
     Route: 048
     Dates: start: 20100113
  12. CIPROFLOXACIN HCL [Suspect]
     Active Substance: CIPROFLOXACIN HYDROCHLORIDE
     Dosage: 500 MG, UNK
     Route: 048
     Dates: start: 20120824
  13. AVELOX [Suspect]
     Active Substance: MOXIFLOXACIN HYDROCHLORIDE
     Dosage: 400 MG
     Dates: start: 20080121
  14. OMNIPEN [Concomitant]
     Active Substance: AMPICILLIN
     Dosage: UNK
  15. PREDNISONE. [Concomitant]
     Active Substance: PREDNISONE
     Dosage: UNK
  16. PREDNISOLONE. [Concomitant]
     Active Substance: PREDNISOLONE
     Dosage: UNK
  17. CIPROFLOXACIN HCL [Suspect]
     Active Substance: CIPROFLOXACIN HYDROCHLORIDE
     Dosage: 500 MG
     Route: 048
     Dates: start: 20080102
  18. FLAGYL [Concomitant]
     Active Substance: METRONIDAZOLE\METRONIDAZOLE HYDROCHLORIDE
     Dosage: UNK
  19. METRONIDAZOLE. [Concomitant]
     Active Substance: METRONIDAZOLE
     Dosage: UNK
  20. PRINCIPEN [Concomitant]
     Active Substance: AMPICILLIN TRIHYDRATE
     Dosage: UNK
  21. AMPICILLIN [Concomitant]
     Active Substance: AMPICILLIN
     Dosage: UNK
  22. CIPROFLOXACIN HCL [Suspect]
     Active Substance: CIPROFLOXACIN HYDROCHLORIDE
     Dosage: 500 MG, UNK
     Route: 048
     Dates: start: 20110610
  23. ANTIDEPRESSANTS [Concomitant]
     Active Substance: UNSPECIFIED INGREDIENT
     Dosage: UNK
  24. VITAMIN B12 [Concomitant]
     Active Substance: CYANOCOBALAMIN
     Dosage: UNK

REACTIONS (19)
  - Pain [None]
  - Balance disorder [None]
  - Hypoaesthesia [None]
  - Pyrexia [None]
  - Visual impairment [None]
  - Cough [None]
  - Dyspnoea [None]
  - Back pain [None]
  - Neuropathy peripheral [None]
  - Burning sensation [None]
  - Asthenia [None]
  - Paraesthesia [None]
  - Road traffic accident [None]
  - Acute sinusitis [None]
  - Upper respiratory tract infection [None]
  - Headache [None]
  - Muscular weakness [None]
  - Vitamin D deficiency [None]
  - Intervertebral disc degeneration [None]

NARRATIVE: CASE EVENT DATE: 2008
